FAERS Safety Report 11883634 (Version 1)
Quarter: 2016Q1

REPORT INFORMATION
  Report Type: Spontaneous
  Country: FR (occurrence: FR)
  Receive Date: 20160101
  Receipt Date: 20160101
  Transmission Date: 20160526
  Serious: Yes (Hospitalization)
  Sender: FDA-Public Use
  Company Number: FR-ROCHE-1685974

PATIENT
  Age: 68 Year
  Sex: Female

DRUGS (12)
  1. AVASTIN [Suspect]
     Active Substance: BEVACIZUMAB
     Indication: GLIOBLASTOMA
     Dosage: 5 ADMINISTRATIONS
     Route: 042
     Dates: start: 20150922, end: 20151117
  2. KEPPRA [Concomitant]
     Active Substance: LEVETIRACETAM
     Route: 065
     Dates: start: 201509
  3. COUMADINE [Concomitant]
     Active Substance: WARFARIN SODIUM
     Indication: DEEP VEIN THROMBOSIS
     Route: 065
     Dates: start: 201510
  4. LOVENOX [Concomitant]
     Active Substance: ENOXAPARIN SODIUM
     Route: 065
     Dates: start: 20151128
  5. ATENOLOL. [Concomitant]
     Active Substance: ATENOLOL
     Route: 065
     Dates: start: 201412
  6. DOLIPRANE [Concomitant]
     Active Substance: ACETAMINOPHEN
     Route: 065
     Dates: start: 201412
  7. INEXIUM [Concomitant]
     Active Substance: ESOMEPRAZOLE
     Indication: GASTROOESOPHAGEAL REFLUX DISEASE
     Route: 065
     Dates: start: 201412
  8. URBANYL [Concomitant]
     Active Substance: CLOBAZAM
     Dosage: 5 MG X 2
     Route: 065
     Dates: start: 20151130, end: 20151205
  9. SOLUPRED (FRANCE) [Concomitant]
     Active Substance: PREDNISOLONE
     Route: 065
     Dates: start: 201412
  10. MUPHORAN [Suspect]
     Active Substance: FOTEMUSTINE
     Indication: GLIOBLASTOMA
     Dosage: 4 ADMINISTRATIONS
     Route: 042
     Dates: start: 20150922, end: 20151103
  11. PAROXETINE [Concomitant]
     Active Substance: PAROXETINE\PAROXETINE HYDROCHLORIDE
     Route: 065
     Dates: start: 201412
  12. TEMODAL [Concomitant]
     Active Substance: TEMOZOLOMIDE
     Route: 065
     Dates: start: 20150420

REACTIONS (1)
  - Hepatitis [Recovering/Resolving]

NARRATIVE: CASE EVENT DATE: 20151201
